FAERS Safety Report 11284768 (Version 2)
Quarter: 2021Q1

REPORT INFORMATION
  Report Type: Report from Study
  Country: US (occurrence: US)
  Receive Date: 20150720
  Receipt Date: 20210309
  Transmission Date: 20210419
  Serious: Yes (Other)
  Sender: FDA-Public Use
  Company Number: US-ELI_LILLY_AND_COMPANY-US201408001762

PATIENT
  Age: 5 Year
  Sex: Female
  Weight: 22.2 kg

DRUGS (12)
  1. HUMATROPE [Suspect]
     Active Substance: SOMATROPIN
     Dosage: 0.225 MG, DAILY
     Route: 058
     Dates: start: 201403
  2. HUMATROPE [Suspect]
     Active Substance: SOMATROPIN
     Dosage: 1.2 MG, DAILY
     Route: 058
  3. HUMATROPE [Suspect]
     Active Substance: SOMATROPIN
     Dosage: 1.5 MG, DAILY
     Route: 058
     Dates: start: 20200820
  4. HUMATROPE [Suspect]
     Active Substance: SOMATROPIN
     Dosage: 0.3 MG, DAILY
     Route: 058
     Dates: start: 201311, end: 201502
  5. HUMATROPE [Suspect]
     Active Substance: SOMATROPIN
     Dosage: 1.7 MG, DAILY
     Route: 058
     Dates: start: 201304
  6. HUMATROPE [Suspect]
     Active Substance: SOMATROPIN
     Dosage: 1.4 MG, DAILY
     Route: 058
  7. HUMATROPE [Suspect]
     Active Substance: SOMATROPIN
     Dosage: UNK UNK, UNKNOWN
     Route: 058
     Dates: start: 201407
  8. HUMATROPE [Suspect]
     Active Substance: SOMATROPIN
     Dosage: 0.2 MG, DAILY
     Route: 058
     Dates: start: 201502
  9. HUMATROPE [Suspect]
     Active Substance: SOMATROPIN
     Indication: TURNER^S SYNDROME
     Dosage: 0.7 MG, UNKNOWN
     Route: 065
     Dates: start: 2012, end: 20130809
  10. HUMATROPE [Suspect]
     Active Substance: SOMATROPIN
     Dosage: 0.2 MG, UNKNOWN
     Route: 065
     Dates: start: 201408
  11. HUMATROPE [Suspect]
     Active Substance: SOMATROPIN
     Dosage: 1.3 MG, DAILY
     Route: 058
     Dates: start: 20190618, end: 20190827
  12. HUMATROPE [Suspect]
     Active Substance: SOMATROPIN
     Dosage: 1.4 MG, DAILY
     Route: 058
     Dates: start: 20190828, end: 20200819

REACTIONS (4)
  - Papilloedema [Recovering/Resolving]
  - Vision blurred [Recovering/Resolving]
  - Product dose omission issue [Unknown]
  - Brain oedema [Recovering/Resolving]

NARRATIVE: CASE EVENT DATE: 201304
